FAERS Safety Report 10213700 (Version 1)
Quarter: 2014Q2

REPORT INFORMATION
  Report Type: Spontaneous
  Country: FR (occurrence: None)
  Receive Date: 20140530
  Receipt Date: 20140530
  Transmission Date: 20141212
  Serious: Yes (Death, Life-Threatening)
  Sender: FDA-Public Use
  Company Number: 2360151

PATIENT
  Age: 68 Year
  Sex: Female

DRUGS (16)
  1. ATRACURIUM BESILATE [Suspect]
     Indication: NEUROMUSCULAR BLOCKING THERAPY
     Route: 040
     Dates: start: 20131216, end: 20131216
  2. BISOPROLOL [Suspect]
     Indication: HYPERTENSION
     Route: 048
  3. ESOMEPRAZOLE [Suspect]
     Indication: PRODUCT USED FOR UNKNOWN INDICATION
     Route: 048
     Dates: start: 20131215
  4. PREGABALIN [Suspect]
     Indication: PRODUCT USED FOR UNKNOWN INDICATION
     Route: 048
     Dates: start: 20131215
  5. LIDOCAINE [Suspect]
     Indication: PERIOPERATIVE ANALGESIA
     Route: 040
     Dates: start: 20131216
  6. PROPOFOL FRESENIUS [Suspect]
     Indication: INDUCTION OF ANAESTHESIA
     Route: 042
     Dates: start: 20131216, end: 20131216
  7. REMIFENTANIL [Suspect]
     Indication: INDUCTION OF ANAESTHESIA
     Route: 040
     Dates: start: 20131216, end: 20131216
  8. KETAMINE PANPHARMA [Suspect]
     Indication: PERIOPERATIVE ANALGESIA
     Route: 040
     Dates: start: 20131216, end: 20131216
  9. CEFAZOLINE [Suspect]
     Indication: ANTIBIOTIC PROPHYLAXIS
     Route: 042
     Dates: start: 20131216, end: 20131216
  10. DEXAMETHASONE [Suspect]
     Indication: PROCEDURAL NAUSEA
     Route: 042
     Dates: start: 20131216
  11. PARACETAMOL [Suspect]
     Indication: POSTOPERATIVE ANALGESIA
     Route: 042
  12. KETOPROFENE [Suspect]
     Indication: POSTOPERATIVE ANALGESIA
     Route: 042
     Dates: start: 20131216
  13. NEFOPAM [Suspect]
     Indication: POSTOPERATIVE ANALGESIA
     Route: 042
     Dates: start: 20131216
  14. MORPHINE [Suspect]
     Indication: POSTOPERATIVE ANALGESIA
     Route: 042
     Dates: start: 20131216
  15. HYDROXYZINE [Concomitant]
  16. ALENDRONATE SODIUM W/COLECALCIFEROL [Concomitant]

REACTIONS (25)
  - Cardiac arrest [None]
  - Ventricular fibrillation [None]
  - Electrocardiogram QRS complex prolonged [None]
  - Electrocardiogram ST segment depression [None]
  - Ventricular hypokinesia [None]
  - Ventricular hyperkinesia [None]
  - Mitral valve incompetence [None]
  - Blood lactic acid increased [None]
  - Metabolic acidosis [None]
  - Mydriasis [None]
  - Pulseless electrical activity [None]
  - Cardiac hypertrophy [None]
  - Arteriosclerosis [None]
  - Myocardial fibrosis [None]
  - Pulmonary oedema [None]
  - Pulmonary infarction [None]
  - Pulmonary haemorrhage [None]
  - Rib fracture [None]
  - Haemangioma of liver [None]
  - Haemangioma [None]
  - Poor peripheral circulation [None]
  - Lactic acidosis [None]
  - Coagulopathy [None]
  - Electrocardiogram repolarisation abnormality [None]
  - Hypotension [None]
